FAERS Safety Report 8800915 (Version 3)
Quarter: 2013Q2

REPORT INFORMATION
  Report Type: Spontaneous
  Country: US (occurrence: US)
  Receive Date: 20120921
  Receipt Date: 20130409
  Transmission Date: 20140414
  Serious: Yes (Hospitalization, Other)
  Sender: FDA-Public Use
  Company Number: US-ASTELLAS-2012US007850

PATIENT
  Age: 27 Year
  Sex: Female
  Weight: 61 kg

DRUGS (3)
  1. PROGRAF [Suspect]
     Indication: RENAL AND LIVER TRANSPLANT
     Dosage: 3 MG, BID
     Route: 048
     Dates: start: 1997, end: 201201
  2. PROGRAF [Suspect]
     Dosage: 3 MG, BID
     Route: 048
     Dates: start: 201207, end: 201210
  3. PROGRAF [Suspect]
     Dosage: 3 MG, BID
     Route: 048
     Dates: start: 201302

REACTIONS (29)
  - Major depression [Unknown]
  - Obsessive-compulsive disorder [Unknown]
  - Generalised anxiety disorder [Unknown]
  - Post-traumatic stress disorder [Unknown]
  - Benzodiazepine drug level [Unknown]
  - Depression suicidal [Unknown]
  - Drug dependence [Unknown]
  - Suicidal ideation [Unknown]
  - Personality disorder [Unknown]
  - Drug abuse [Unknown]
  - Alcoholism [Unknown]
  - Hallucination, auditory [Unknown]
  - Suicide attempt [Unknown]
  - Treatment noncompliance [Unknown]
  - Intestinal resection [Unknown]
  - Tonsillectomy [Unknown]
  - Appendicectomy [Unknown]
  - Cholecystectomy [Unknown]
  - Hernia repair [Unknown]
  - Liver transplant rejection [Unknown]
  - Pneumonia [Unknown]
  - Staphylococcal infection [Unknown]
  - Hepatic failure [Unknown]
  - Arthritis [Unknown]
  - Dizziness [Unknown]
  - Hypertension [Unknown]
  - Migraine [Unknown]
  - Gastrooesophageal reflux disease [Unknown]
  - Nightmare [Unknown]
